FAERS Safety Report 5479310-5 (Version None)
Quarter: 2007Q4

REPORT INFORMATION
  Report Type: 
  Country: None (occurrence: None)
  Receive Date: 20071008
  Receipt Date: 20070928
  Transmission Date: 20080405
  Serious: Yes (Other)
  Sender: FDA-Public Use
  Company Number: PHBS2007CH16122

PATIENT
  Age: 25 Year
  Sex: Male

DRUGS (3)
  1. ABILIFY [Concomitant]
     Dosage: 5MG/D
     Route: 065
  2. LAMICTAL [Concomitant]
     Dosage: 50MG/D
     Route: 065
  3. LEPONEX [Suspect]
     Indication: TRANSIENT PSYCHOSIS
     Dosage: 300MG/D
     Route: 065
     Dates: start: 20040101

REACTIONS (2)
  - BUNDLE BRANCH BLOCK RIGHT [None]
  - ELECTROCARDIOGRAM QT PROLONGED [None]
